FAERS Safety Report 5392174-3 (Version None)
Quarter: 2007Q3

REPORT INFORMATION
  Report Type: 
  Country: None (occurrence: None)
  Receive Date: 20070717
  Receipt Date: 20070717
  Transmission Date: 20080115
  Serious: Yes (Hospitalization)
  Sender: FDA-Public Use
  Company Number: None

PATIENT
  Age: 59 Year
  Sex: Male

DRUGS (1)
  1. ATENOLOL [Suspect]
     Indication: HYPERTENSION
     Dosage: 100MG EVERY DAY PO
     Route: 048
     Dates: start: 20070601, end: 20070716

REACTIONS (2)
  - BRADYCARDIA [None]
  - SINUS BRADYCARDIA [None]
